FAERS Safety Report 10246042 (Version 1)
Quarter: 2014Q2

REPORT INFORMATION
  Report Type: Spontaneous
  Country: TW (occurrence: TW)
  Receive Date: 20140619
  Receipt Date: 20140619
  Transmission Date: 20141212
  Serious: Yes (Hospitalization, Other)
  Sender: FDA-Public Use
  Company Number: TW-JNJFOC-20140511765

PATIENT
  Age: 82 Year
  Sex: Male

DRUGS (10)
  1. ZYTIGA [Suspect]
     Indication: PROSTATE CANCER METASTATIC
     Route: 048
     Dates: start: 20140303
  2. ZYTIGA [Suspect]
     Indication: PROSTATE CANCER METASTATIC
     Route: 048
     Dates: start: 201402
  3. METFORMINE [Suspect]
     Indication: DIABETES MELLITUS
     Route: 065
  4. GLIMEPIRIDE [Suspect]
     Indication: DIABETES MELLITUS
     Route: 065
  5. PREDNISOLONE [Suspect]
     Indication: PRODUCT USED FOR UNKNOWN INDICATION
     Route: 065
  6. COAPROVEL [Concomitant]
     Dosage: (150/12.5)
     Route: 065
  7. FUROSEMIDE [Concomitant]
     Route: 065
  8. MEGESTROL [Concomitant]
     Route: 065
  9. TRANEXAMIC ACID [Concomitant]
     Route: 065
  10. HYDROCORTISONE ENEMA [Concomitant]
     Route: 065

REACTIONS (2)
  - Malaise [Unknown]
  - Hypoglycaemia [Recovered/Resolved]
